FAERS Safety Report 7818595-4 (Version None)
Quarter: 2011Q4

REPORT INFORMATION
  Report Type: 
  Country: None (occurrence: None)
  Receive Date: 20111017
  Receipt Date: 20111007
  Transmission Date: 20120403
  Serious: Yes (Hospitalization)
  Sender: FDA-Public Use
  Company Number: US-ASTRAZENECA-2010SE36422

PATIENT
  Age: 62 Year
  Sex: Female

DRUGS (4)
  1. LIPITOR [Concomitant]
  2. POTASSIUM CHLORIDE [Concomitant]
  3. MINT OIL [Suspect]
     Route: 065
  4. TOPROL-XL [Suspect]
     Route: 048

REACTIONS (3)
  - HYPERTENSION [None]
  - FALL [None]
  - CEREBROVASCULAR ACCIDENT [None]
